FAERS Safety Report 4284471-X (Version None)
Quarter: 2004Q1

REPORT INFORMATION
  Report Type: 
  Country: None (occurrence: None)
  Receive Date: 20040130
  Receipt Date: 20040113
  Transmission Date: 20041129
  Serious: Yes (Death)
  Sender: FDA-Public Use
  Company Number: US_040199908

PATIENT
  Sex: Male

DRUGS (1)
  1. FLUOXETINE HCL [Suspect]
     Dates: start: 19951105

REACTIONS (1)
  - COMPLETED SUICIDE [None]
